FAERS Safety Report 6641796-8 (Version None)
Quarter: 2010Q1

REPORT INFORMATION
  Report Type: 
  Country: None (occurrence: None)
  Receive Date: 20100316
  Receipt Date: 20100308
  Transmission Date: 20100710
  Serious: Yes (Hospitalization)
  Sender: FDA-Public Use
  Company Number: 2010AC000173

PATIENT
  Age: 72 Year
  Sex: Female
  Weight: 53.5244 kg

DRUGS (32)
  1. DIGOXIN [Suspect]
     Dosage: .25 MG, QD, PO
     Route: 048
     Dates: end: 20080401
  2. DIGOXIN [Suspect]
     Dosage: .125 MG, PO
     Route: 048
     Dates: start: 20080501
  3. DIGOXIN [Suspect]
     Dosage: .25 MG, PO
     Route: 048
     Dates: start: 20000401
  4. SYNTHROIID [Concomitant]
  5. AZOR [Concomitant]
  6. ASPIRIN [Concomitant]
  7. PROTONIX [Concomitant]
  8. PRILOSEC [Concomitant]
  9. IRON [Concomitant]
  10. ADVAIR DISKUS 100/50 [Concomitant]
  11. ALBUTEROL [Concomitant]
  12. REVATIO [Concomitant]
  13. DIOVAN [Concomitant]
  14. HYDROCHLOROTHIAZIDE [Concomitant]
  15. XANAX [Concomitant]
  16. COUMADIN [Concomitant]
  17. LIDOCAINE [Concomitant]
  18. PREDNISONE [Concomitant]
  19. HYZAAR [Concomitant]
  20. CHANTIX [Concomitant]
  21. AZITHROMYCIN [Concomitant]
  22. SIMUC [Concomitant]
  23. AMOXICILLIN [Concomitant]
  24. OMNICEF [Concomitant]
  25. AMIODARONE HCL [Concomitant]
  26. ZYRTEC [Concomitant]
  27. FLOVENT [Concomitant]
  28. CARDIZEM [Concomitant]
  29. VIAGRA [Concomitant]
  30. LASIX [Concomitant]
  31. SPIRIVA [Concomitant]
  32. SYNTHROID [Concomitant]

REACTIONS (39)
  - ANHEDONIA [None]
  - ANXIETY [None]
  - ARRHYTHMIA SUPRAVENTRICULAR [None]
  - ASTHENIA [None]
  - ATRIAL FIBRILLATION [None]
  - ATRIAL FLUTTER [None]
  - BLOOD POTASSIUM DECREASED [None]
  - CARDIAC ANEURYSM [None]
  - CARDIAC MURMUR [None]
  - CHRONIC OBSTRUCTIVE PULMONARY DISEASE [None]
  - CORONARY ARTERY DISEASE [None]
  - COUGH [None]
  - DECREASED APPETITE [None]
  - DILATATION ATRIAL [None]
  - DILATATION VENTRICULAR [None]
  - DIZZINESS [None]
  - DYSPNOEA [None]
  - EMOTIONAL DISORDER [None]
  - FATIGUE [None]
  - FEAR [None]
  - HEART RATE INCREASED [None]
  - HYPERTENSION [None]
  - INFERIOR VENA CAVA DILATATION [None]
  - INJURY [None]
  - MENTAL DISORDER [None]
  - MITRAL VALVE CALCIFICATION [None]
  - MITRAL VALVE INCOMPETENCE [None]
  - OEDEMA PERIPHERAL [None]
  - PAIN [None]
  - PALPITATIONS [None]
  - PNEUMONIA [None]
  - PULMONARY ARTERY DILATATION [None]
  - PULMONARY HYPERTENSION [None]
  - PULMONARY VALVE INCOMPETENCE [None]
  - RIGHT VENTRICULAR DYSFUNCTION [None]
  - STRESS [None]
  - THERAPEUTIC AGENT TOXICITY [None]
  - TREMOR [None]
  - TRICUSPID VALVE INCOMPETENCE [None]
